FAERS Safety Report 14106582 (Version 1)
Quarter: 2017Q4

REPORT INFORMATION
  Report Type: Spontaneous
  Country: US (occurrence: US)
  Receive Date: 20171018
  Receipt Date: 20171018
  Transmission Date: 20180321
  Serious: No
  Sender: FDA-Public Use
  Company Number: None

PATIENT
  Age: 42 Year
  Sex: Male
  Weight: 97.65 kg

DRUGS (1)
  1. TEFLARO [Suspect]
     Active Substance: CEFTAROLINE FOSAMIL
     Indication: OSTEOMYELITIS ACUTE
     Route: 042
     Dates: start: 20171006, end: 20171010

REACTIONS (3)
  - Nausea [None]
  - Diarrhoea [None]
  - Drug intolerance [None]

NARRATIVE: CASE EVENT DATE: 20171010
